FAERS Safety Report 8292082-4 (Version None)
Quarter: 2012Q2

REPORT INFORMATION
  Report Type: 
  Country: None (occurrence: None)
  Receive Date: 20120417
  Receipt Date: 20120201
  Transmission Date: 20120825
  Serious: No
  Sender: FDA-Public Use
  Company Number: US-ASTRAZENECA-2012SE07071

PATIENT
  Age: 67 Year
  Sex: Female
  Weight: 66.7 kg

DRUGS (4)
  1. NEXIUM [Suspect]
     Dosage: MANUFACTURED BY GLENMARK GENERICS
     Route: 048
  2. ASPIRIN [Concomitant]
  3. SIMVASTATIN [Concomitant]
  4. NEXIUM [Suspect]
     Indication: GASTROOESOPHAGEAL REFLUX DISEASE
     Route: 048

REACTIONS (4)
  - OESOPHAGEAL HAEMORRHAGE [None]
  - DRUG DOSE OMISSION [None]
  - DYSPEPSIA [None]
  - INSOMNIA [None]
